FAERS Safety Report 7927651-1 (Version None)
Quarter: 2011Q4

REPORT INFORMATION
  Report Type: 
  Country: None (occurrence: None)
  Receive Date: 20111118
  Receipt Date: 20111110
  Transmission Date: 20120403
  Serious: Yes (Other)
  Sender: FDA-Public Use
  Company Number: US-GILEAD-2011-0039388

PATIENT
  Age: 23 Year
  Sex: Female

DRUGS (6)
  1. EMTRICITABINE/TENOFOVIR DISOPROXIL FUMARATE [Suspect]
     Indication: HIV INFECTION
     Dates: start: 20090820, end: 20110331
  2. ALBENDAZOLE [Concomitant]
     Dates: start: 20110331, end: 20110406
  3. ACETAMINOPHEN [Concomitant]
     Dates: start: 20110331, end: 20110406
  4. DOXYCYCLINE [Concomitant]
     Dates: start: 20110221, end: 20110228
  5. METRONIDAZOLE [Concomitant]
     Dates: start: 20110221, end: 20110228
  6. TRAMADOL HCL [Concomitant]
     Dates: start: 20110303, end: 20110306

REACTIONS (1)
  - ABORTION SPONTANEOUS [None]
